FAERS Safety Report 7058625-3 (Version None)
Quarter: 2010Q4

REPORT INFORMATION
  Report Type: 
  Country: None (occurrence: None)
  Receive Date: 20101022
  Receipt Date: 20101014
  Transmission Date: 20110411
  Serious: Yes (Hospitalization)
  Sender: FDA-Public Use
  Company Number: B0679326A

PATIENT
  Sex: Male

DRUGS (5)
  1. SERETIDE [Suspect]
     Indication: ASTHMA
     Dosage: 500MCG TWICE PER DAY
     Route: 055
     Dates: start: 20060129
  2. CHAMPIX [Suspect]
     Dosage: .5MG SEE DOSAGE TEXT
     Route: 048
     Dates: start: 20100710, end: 20100716
  3. AIROMIR [Suspect]
     Indication: ASTHMA
     Dosage: 100MCG AS REQUIRED
     Route: 055
     Dates: start: 20060129
  4. ALLOPURINOL [Concomitant]
  5. KENZEN [Concomitant]
     Indication: HYPERTENSION

REACTIONS (3)
  - ACUTE CORONARY SYNDROME [None]
  - CORONARY ARTERY OCCLUSION [None]
  - TROPONIN INCREASED [None]
